FAERS Safety Report 5432967-7 (Version None)
Quarter: 2007Q3

REPORT INFORMATION
  Report Type: 
  Country: None (occurrence: None)
  Receive Date: 20070831
  Receipt Date: 20070823
  Transmission Date: 20080115
  Serious: Yes (Hospitalization)
  Sender: FDA-Public Use
  Company Number: JP-JNJFOC-20070805754

PATIENT
  Age: 18 Year
  Sex: Male
  Weight: 60.7 kg

DRUGS (4)
  1. RISPERDAL [Suspect]
     Indication: DELUSION
     Route: 048
  2. RISPERDAL [Suspect]
     Indication: HALLUCINATION
     Route: 048
  3. OLANZAPINE [Suspect]
     Indication: DELUSION
  4. OLANZAPINE [Suspect]
     Indication: HALLUCINATION

REACTIONS (2)
  - INCREASED APPETITE [None]
  - LIPID METABOLISM DISORDER [None]
